FAERS Safety Report 8531356-6 (Version None)
Quarter: 2012Q3

REPORT INFORMATION
  Report Type: 
  Country: None (occurrence: None)
  Receive Date: 20120723
  Receipt Date: 20120711
  Transmission Date: 20120928
  Serious: Yes (Other)
  Sender: FDA-Public Use
  Company Number: US-ACTELION-A-US2012-66026

PATIENT

DRUGS (3)
  1. LETAIRIS [Concomitant]
  2. TRACLEER [Suspect]
     Indication: PULMONARY ARTERIAL HYPERTENSION
     Dosage: UNK
     Route: 048
     Dates: start: 20040826
  3. ASPIRIN [Concomitant]

REACTIONS (3)
  - PALPITATIONS [None]
  - DYSPNOEA [None]
  - GENERAL PHYSICAL CONDITION ABNORMAL [None]
